FAERS Safety Report 9597249 (Version 1)
Quarter: 2013Q4

REPORT INFORMATION
  Report Type: Spontaneous
  Country: US (occurrence: US)
  Receive Date: 20131004
  Receipt Date: 20131004
  Transmission Date: 20140711
  Serious: No
  Sender: FDA-Public Use
  Company Number: US-AMGEN-USASP2013018242

PATIENT
  Age: 64 Year
  Sex: Male
  Weight: 90.7 kg

DRUGS (5)
  1. ENBREL [Suspect]
     Indication: PSORIATIC ARTHROPATHY
     Dosage: 50 MG, QWK
     Route: 058
  2. LOVASTATIN [Concomitant]
     Dosage: 10 MG, UNK
     Route: 048
  3. INDOCIN                            /00003801/ [Concomitant]
     Dosage: 75 MG, UNK
     Route: 048
  4. IBUPROFEN [Concomitant]
     Dosage: 200 MG, UNK
     Route: 048
  5. LISINOPRIL [Concomitant]
     Dosage: 10 MG, UNK
     Route: 048

REACTIONS (1)
  - Muscle spasms [Unknown]
